FAERS Safety Report 11334599 (Version 1)
Quarter: 2015Q3

REPORT INFORMATION
  Report Type: Spontaneous
  Country: US (occurrence: US)
  Receive Date: 20150804
  Receipt Date: 20150804
  Transmission Date: 20151125
  Serious: No
  Sender: FDA-Public Use
  Company Number: US-ASTRAZENECA-2013SE26723

PATIENT
  Sex: Male
  Weight: 79.4 kg

DRUGS (5)
  1. ONGLYZA [Suspect]
     Active Substance: SAXAGLIPTIN HYDROCHLORIDE
     Route: 048
  2. BYDUREON [Suspect]
     Active Substance: EXENATIDE
     Route: 065
  3. LANTUS [Suspect]
     Active Substance: INSULIN GLARGINE
     Dosage: EVERY DAY
  4. METFORMIN HCL [Suspect]
     Active Substance: METFORMIN HYDROCHLORIDE
     Route: 048
  5. INSULIN [Suspect]
     Active Substance: INSULIN NOS
     Dosage: 1DF:10UNITS EVERY DAY
     Route: 058

REACTIONS (5)
  - Injection site haemorrhage [Unknown]
  - Injection site pruritus [Unknown]
  - Blood glucose fluctuation [Recovering/Resolving]
  - Injection site nodule [Unknown]
  - Injection site pain [Unknown]
